FAERS Safety Report 8880971 (Version 1)
Quarter: 2012Q4

REPORT INFORMATION
  Report Type: 
  Country: SE (occurrence: SE)
  Receive Date: 20121101
  Receipt Date: 20121101
  Transmission Date: 20130627
  Serious: Yes (Hospitalization)
  Sender: FDA-Public Use
  Company Number: SE-PFIZER INC-2012267755

PATIENT
  Age: 43 Year
  Sex: Female
  Weight: 64 kg

DRUGS (7)
  1. GENOTROPIN [Suspect]
     Indication: GROWTH HORMONE DEFICIENCY
     Dosage: 0.2 mg, 7/wk
     Route: 058
     Dates: start: 20060601
  2. HYDROCORTONE [Concomitant]
     Indication: ACTH DECREASED
     Dosage: UNK
     Dates: start: 20041011
  3. FEMASEKVENS [Concomitant]
     Indication: LH BLOOD DECREASED
     Dosage: UNK
     Dates: start: 20050621
  4. FEMASEKVENS [Concomitant]
     Indication: FSH DECREASED
  5. FEMASEKVENS [Concomitant]
     Indication: HYPOGONADISM FEMALE
  6. LEVOTHYROXINE [Concomitant]
     Indication: TSH DECREASED
     Dosage: UNK
     Dates: start: 20041011
  7. LEVOTHYROXINE [Concomitant]
     Indication: PRIMARY HYPOTHYROIDISM

REACTIONS (1)
  - Uterine disorder [Unknown]
